FAERS Safety Report 8232438-9 (Version None)
Quarter: 2012Q1

REPORT INFORMATION
  Report Type: 
  Country: None (occurrence: None)
  Receive Date: 20120323
  Receipt Date: 20120314
  Transmission Date: 20120608
  Serious: Yes (Other)
  Sender: FDA-Public Use
  Company Number: ZA-ABBOTT-12P-143-0912331-00

PATIENT
  Sex: Male
  Weight: 160 kg

DRUGS (3)
  1. HUMIRA [Suspect]
     Dates: start: 20120301
  2. HUMIRA [Suspect]
     Indication: ANKYLOSING SPONDYLITIS
     Route: 058
     Dates: start: 20111101, end: 20120201
  3. VALSARTAN  AND HYDROCHLOROTHIAZIDE [Concomitant]
     Indication: HYPERTENSION
     Route: 048

REACTIONS (4)
  - LIGAMENT RUPTURE [None]
  - TENDON RUPTURE [None]
  - MUSCLE RUPTURE [None]
  - SPORTS INJURY [None]
